FAERS Safety Report 6723573-2 (Version None)
Quarter: 2010Q2

REPORT INFORMATION
  Report Type: 
  Country: None (occurrence: None)
  Receive Date: 20100513
  Receipt Date: 20100503
  Transmission Date: 20101027
  Serious: Yes (Other)
  Sender: FDA-Public Use
  Company Number: DE-WYE-H15004410

PATIENT
  Sex: Female

DRUGS (1)
  1. PANTOZOL [Suspect]
     Indication: GASTRITIS
     Dosage: UNSPECIFIED

REACTIONS (2)
  - ARTHRALGIA [None]
  - HYPOAESTHESIA [None]
